FAERS Safety Report 10145708 (Version 1)
Quarter: 2014Q2

REPORT INFORMATION
  Report Type: Spontaneous
  Country: US (occurrence: US)
  Receive Date: 20140501
  Receipt Date: 20140501
  Transmission Date: 20141212
  Serious: No
  Sender: FDA-Public Use
  Company Number: US-ABBVIE-14P-163-1188960-00

PATIENT
  Sex: Female
  Weight: 90.8 kg

DRUGS (5)
  1. CREON [Suspect]
     Indication: DIARRHOEA
     Dosage: TWO CAPSULES WITH EACH MEAL AND ONE CAPSULE WITH SNACKS
     Dates: start: 2012
  2. SIMVASTATIN [Concomitant]
     Indication: BLOOD CHOLESTEROL INCREASED
  3. DEXILENT DR [Concomitant]
     Indication: GASTROOESOPHAGEAL REFLUX DISEASE
  4. DICLOFENAC [Concomitant]
     Indication: PAIN
  5. NORTRIPTYLINE HCL [Concomitant]
     Indication: ABDOMINAL PAIN

REACTIONS (3)
  - Steatorrhoea [Not Recovered/Not Resolved]
  - Weight increased [Not Recovered/Not Resolved]
  - Off label use [Unknown]
